FAERS Safety Report 9112401 (Version 1)
Quarter: 2013Q1

REPORT INFORMATION
  Report Type: Spontaneous
  Country: US (occurrence: US)
  Receive Date: 20130219
  Receipt Date: 20130219
  Transmission Date: 20140127
  Serious: No
  Sender: FDA-Public Use
  Company Number: US-BRISTOL-MYERS SQUIBB COMPANY-16857401

PATIENT
  Age: 74 Year
  Sex: Female

DRUGS (2)
  1. ORENCIA [Suspect]
     Indication: RHEUMATOID ARTHRITIS
     Dosage: LAST INF ON 3AUG2012
     Route: 042
  2. PLAQUENIL [Concomitant]

REACTIONS (4)
  - Fatigue [Unknown]
  - Respiratory disorder [Unknown]
  - Dyspepsia [Unknown]
  - Hyperhidrosis [Unknown]
